FAERS Safety Report 8223862-9 (Version None)
Quarter: 2012Q1

REPORT INFORMATION
  Report Type: 
  Country: None (occurrence: None)
  Receive Date: 20120321
  Receipt Date: 20120316
  Transmission Date: 20120608
  Serious: Yes (Other)
  Sender: FDA-Public Use
  Company Number: US-PFIZER INC-2010086780

PATIENT
  Sex: Female
  Weight: 75 kg

DRUGS (8)
  1. AVANDIA [Concomitant]
     Dosage: UNK
  2. GLIPIZIDE [Concomitant]
     Indication: TYPE 2 DIABETES MELLITUS
     Dosage: 5 MG, DAILY
  3. TOPROL-XL [Concomitant]
     Indication: HYPERTENSION
     Dosage: 25 MG, 2X/DAY
  4. LIPITOR [Concomitant]
     Indication: BLOOD CHOLESTEROL ABNORMAL
     Dosage: 20 MG, DAILY
  5. TIKOSYN [Suspect]
     Indication: ATRIAL FIBRILLATION
     Dosage: 250 UG, 2X/DAY
     Route: 048
     Dates: start: 20091201
  6. WARFARIN [Concomitant]
     Dosage: 5 MG, UNK
  7. AMIODARONE HCL [Suspect]
     Indication: ATRIAL FIBRILLATION
     Dosage: 300 MG, 2X/DAY
     Route: 065
     Dates: end: 20090101
  8. POTASSIUM [Concomitant]
     Dosage: 20 MEQ, UNK

REACTIONS (8)
  - INTERVERTEBRAL DISC DEGENERATION [None]
  - UNEVALUABLE EVENT [None]
  - BLOOD PRESSURE INCREASED [None]
  - ABASIA [None]
  - NEUROPATHY PERIPHERAL [None]
  - NERVE COMPRESSION [None]
  - SPINAL OSTEOARTHRITIS [None]
  - OSTEOARTHRITIS [None]
